FAERS Safety Report 5173436-1 (Version None)
Quarter: 2006Q4

REPORT INFORMATION
  Report Type: 
  Country: None (occurrence: None)
  Receive Date: 20061208
  Receipt Date: 20061208
  Transmission Date: 20070319
  Serious: Yes (Hospitalization)
  Sender: FDA-Public Use
  Company Number: None

PATIENT
  Sex: Female
  Weight: 38.4 kg

DRUGS (22)
  1. CETUXIMAB 230 MG/M2 BRISTOL MYERS SQUIBB [Suspect]
     Indication: CERVIX CARCINOMA
     Dosage: 380 MG WEEKLY IV
     Route: 042
     Dates: start: 20060928
  2. CETUXIMAB 230 MG/M2 BRISTOL MYERS SQUIBB [Suspect]
     Indication: CERVIX CARCINOMA
     Dosage: 380 MG WEEKLY IV
     Route: 042
     Dates: start: 20061005
  3. CETUXIMAB 230 MG/M2 BRISTOL MYERS SQUIBB [Suspect]
     Indication: CERVIX CARCINOMA
     Dosage: 380 MG WEEKLY IV
     Route: 042
     Dates: start: 20061012
  4. CETUXIMAB 230 MG/M2 BRISTOL MYERS SQUIBB [Suspect]
     Indication: CERVIX CARCINOMA
     Dosage: 380 MG WEEKLY IV
     Route: 042
     Dates: start: 20061019
  5. CETUXIMAB 230 MG/M2 BRISTOL MYERS SQUIBB [Suspect]
     Indication: CERVIX CARCINOMA
     Dosage: 380 MG WEEKLY IV
     Route: 042
     Dates: start: 20061031
  6. CETUXIMAB 230 MG/M2 BRISTOL MYERS SQUIBB [Suspect]
     Indication: CERVIX CARCINOMA
     Dosage: 380 MG WEEKLY IV
     Route: 042
     Dates: start: 20061110
  7. OXYCODONE HCL [Concomitant]
  8. PROCHLORPERAZINE [Concomitant]
  9. LIDOCAINE [Concomitant]
  10. NAPROXEN [Concomitant]
  11. ONDANSETRON HCL [Concomitant]
  12. POTASSIUM CHLORIDE [Concomitant]
  13. CLINDAMYCIN [Concomitant]
  14. GABAPENTIN [Concomitant]
  15. TEMAZEPAM [Concomitant]
  16. FAMOTIDINE [Concomitant]
  17. DOXYCYCLINE [Concomitant]
  18. PROMETHAZINE HCL [Concomitant]
  19. LORAZEPAM [Concomitant]
  20. POLYETHYLENE GLYCOL [Concomitant]
  21. CASTER OIL/PERU BALSAM/TRYPSIN OINTMENT [Concomitant]
  22. ALUMINUM W/ MAGNESIUM HYDROXIDE/NYSTATIN/DIPHENHYDRAMINE [Concomitant]

REACTIONS (2)
  - NAUSEA [None]
  - VOMITING [None]
